FAERS Safety Report 15825576 (Version 1)
Quarter: 2019Q1

REPORT INFORMATION
  Report Type: Spontaneous
  Country: JP (occurrence: JP)
  Receive Date: 20190115
  Receipt Date: 20190115
  Transmission Date: 20190417
  Serious: Yes (Other)
  Sender: FDA-Public Use
  Company Number: JP-MYLANLABS-2019M1002605

PATIENT
  Age: 81 Year
  Sex: Male
  Weight: 51.9 kg

DRUGS (3)
  1. CARBOPLATIN. [Suspect]
     Active Substance: CARBOPLATIN
     Indication: TRANSITIONAL CELL CARCINOMA RECURRENT
     Dosage: FOR 60 MIN ON DAY 1 OF A 21-DAY CYCLE; TARGET AUC: 5.0 MG/ML/MIN
     Route: 041
  2. HEPARIN [Concomitant]
     Active Substance: HEPARIN SODIUM
     Indication: ANTICOAGULANT THERAPY
     Route: 050
  3. GEMCITABINE [Suspect]
     Active Substance: GEMCITABINE\GEMCITABINE HYDROCHLORIDE
     Indication: TRANSITIONAL CELL CARCINOMA RECURRENT
     Dosage: FOR 30 MIN ON DAYS 1 AND 8 OF A 21-DAY CYCLE
     Route: 041

REACTIONS (5)
  - Overdose [Recovering/Resolving]
  - Haemoglobin decreased [Recovering/Resolving]
  - Thrombocytopenia [Recovering/Resolving]
  - Neutropenia [Recovering/Resolving]
  - Quality of life decreased [Recovering/Resolving]
